FAERS Safety Report 10641598 (Version 2)
Quarter: 2015Q1

REPORT INFORMATION
  Report Type: Spontaneous
  Country: US (occurrence: US)
  Receive Date: 20141209
  Receipt Date: 20150101
  Transmission Date: 20150720
  Serious: Yes (Death)
  Sender: FDA-Public Use
  Company Number: US-009507513-1412USA002315

PATIENT
  Sex: Male

DRUGS (2)
  1. NOXAFIL [Suspect]
     Active Substance: POSACONAZOLE
     Dosage: 400 MG, QD
     Route: 048
     Dates: start: 20141006
  2. NOXAFIL [Suspect]
     Active Substance: POSACONAZOLE
     Dosage: 20 ML, QD, STRENGTH:40MG/ML
     Route: 048
     Dates: start: 201111, end: 20141005

REACTIONS (1)
  - Death [Fatal]

NARRATIVE: CASE EVENT DATE: 2014
